FAERS Safety Report 7973357-2 (Version None)
Quarter: 2011Q4

REPORT INFORMATION
  Report Type: 
  Country: None (occurrence: None)
  Receive Date: 20111213
  Receipt Date: 20111006
  Transmission Date: 20120403
  Serious: Yes (Other)
  Sender: FDA-Public Use
  Company Number: PHFR2011GB03907

PATIENT
  Sex: Male
  Weight: 59.6 kg

DRUGS (7)
  1. FERROUS SULFATE TAB [Concomitant]
     Indication: ANAEMIA
     Dosage: UNK
     Route: 048
  2. ILARIS [Suspect]
     Indication: CRYOPYRIN ASSOCIATED PERIODIC SYNDROME
     Dosage: 150 MG 8 WEEKLY
     Route: 058
     Dates: start: 20110201, end: 20110301
  3. ILARIS [Suspect]
     Dosage: 300 MG 8 WEEKLY
     Route: 058
     Dates: start: 20110301
  4. BENDROFLUMETHIAZIDE [Concomitant]
     Indication: OEDEMA PERIPHERAL
     Dosage: UNK
     Route: 048
  5. LACTULOSE [Concomitant]
     Dosage: UNK
     Route: 048
  6. OMEPRAZOLE [Concomitant]
     Indication: PROPHYLAXIS
     Dosage: UNK
     Route: 048
  7. IBUPROFEN [Concomitant]
     Indication: ANALGESIC THERAPY
     Dosage: 400 MG, PRN
     Route: 048

REACTIONS (3)
  - ERYTHEMA [None]
  - SKIN PLAQUE [None]
  - CELLULITIS [None]
